FAERS Safety Report 5834816-1 (Version None)
Quarter: 2008Q3

REPORT INFORMATION
  Report Type: 
  Country: None (occurrence: None)
  Receive Date: 20080805
  Receipt Date: 20080725
  Transmission Date: 20090109
  Serious: Yes (Hospitalization)
  Sender: FDA-Public Use
  Company Number: US-ELI_LILLY_AND_COMPANY-US200805005571

PATIENT
  Sex: Female
  Weight: 111.11 kg

DRUGS (11)
  1. BYETTA [Suspect]
     Indication: TYPE 2 DIABETES MELLITUS
     Dosage: 5 UG, 2/D
     Route: 058
     Dates: start: 20061101, end: 20060101
  2. BYETTA [Suspect]
     Dosage: 10 UG, EACH MORNING
     Route: 058
  3. BYETTA [Suspect]
     Dosage: 5 UG, EACH EVENING
     Route: 058
  4. BYETTA [Suspect]
     Dosage: 10 UG, 2/D
     Route: 058
  5. METFORMIN HCL [Concomitant]
     Dates: end: 20070101
  6. ZYRTEC [Concomitant]
     Route: 048
  7. SINGULAIR [Concomitant]
     Route: 048
  8. CYMBALTA [Concomitant]
     Route: 048
  9. LEVOTHYROXINE SODIUM [Concomitant]
     Route: 048
  10. SIMVASTATIN [Concomitant]
     Route: 048
  11. ADVAIR DISKUS 100/50 [Concomitant]

REACTIONS (3)
  - INJECTION SITE HAEMORRHAGE [None]
  - SINUSITIS [None]
  - WEIGHT DECREASED [None]
